FAERS Safety Report 10773810 (Version 2)
Quarter: 2016Q1

REPORT INFORMATION
  Report Type: Other
  Country: US (occurrence: US)
  Receive Date: 20150208
  Receipt Date: 20160219
  Transmission Date: 20160525
  Serious: Yes (Other)
  Sender: FDA-Public Use
  Company Number: US-ACORDA-ACO_106391_2014

PATIENT
  Sex: Male
  Weight: 121.1 kg

DRUGS (2)
  1. AMPYRA [Suspect]
     Active Substance: DALFAMPRIDINE
     Indication: SECONDARY PROGRESSIVE MULTIPLE SCLEROSIS
     Dosage: 10 MG, BID
     Route: 048
  2. REBIF [Suspect]
     Active Substance: INTERFERON BETA-1A
     Indication: SECONDARY PROGRESSIVE MULTIPLE SCLEROSIS
     Dosage: 44 MCG/0.5ML, 3X/WK
     Route: 058
     Dates: end: 2014

REACTIONS (4)
  - Injection site infection [Recovering/Resolving]
  - Sepsis [Recovering/Resolving]
  - Injection site reaction [Recovering/Resolving]
  - Injection site scar [Recovering/Resolving]

NARRATIVE: CASE EVENT DATE: 2014
